FAERS Safety Report 6775075-5 (Version None)
Quarter: 2010Q2

REPORT INFORMATION
  Report Type: 
  Country: None (occurrence: None)
  Receive Date: 20100617
  Receipt Date: 20100607
  Transmission Date: 20101027
  Serious: Yes (Death)
  Sender: FDA-Public Use
  Company Number: B0659443A

PATIENT
  Sex: Female
  Weight: 58 kg

DRUGS (3)
  1. IMIGRAN [Suspect]
     Dosage: 6MG PER DAY
     Route: 030
     Dates: start: 20100301, end: 20100328
  2. ABILIFY [Concomitant]
     Indication: MANIA
     Route: 048
  3. SEROQUEL [Concomitant]
     Indication: MANIA
     Dosage: 100MG AS REQUIRED
     Route: 048

REACTIONS (1)
  - SUDDEN DEATH [None]
